FAERS Safety Report 5010435-4 (Version None)
Quarter: 2006Q2

REPORT INFORMATION
  Report Type: 
  Country: None (occurrence: None)
  Receive Date: 20060523
  Receipt Date: 20060512
  Transmission Date: 20061013
  Serious: Yes (Hospitalization)
  Sender: FDA-Public Use
  Company Number: 2006061472

PATIENT
  Age: 56 Year
  Sex: Male

DRUGS (4)
  1. SULFASALAZINE [Suspect]
     Indication: ILL-DEFINED DISORDER
     Dosage: 2000 MG (1 IN 1 D), ORAL
     Route: 048
     Dates: start: 20060117, end: 20060215
  2. PANTOPRAZOLE SODIUM [Suspect]
     Indication: ILL-DEFINED DISORDER
     Dosage: 20 MG (20 MG, 1 IN 1 D), ORAL
     Route: 048
     Dates: start: 20060117, end: 20060215
  3. DICLOFENAC SODIUM [Suspect]
     Indication: ILL-DEFINED DISORDER
     Dosage: 1 IN 1 D, ORAL
     Route: 048
     Dates: start: 20060117, end: 20060215
  4. PREDNISOLONE [Suspect]
     Indication: ILL-DEFINED DISORDER
     Dosage: 5 MG (5 MG), ORAL
     Route: 048
     Dates: start: 20060117, end: 20060215

REACTIONS (22)
  - BLOOD ALBUMIN DECREASED [None]
  - DERMATITIS EXFOLIATIVE [None]
  - DRUG RASH WITH EOSINOPHILIA AND SYSTEMIC SYMPTOMS [None]
  - EOSINOPHIL COUNT INCREASED [None]
  - EOSINOPHILIA [None]
  - EPSTEIN-BARR VIRUS INFECTION [None]
  - ERYTHEMA [None]
  - ERYTHEMA OF EYELID [None]
  - FACE OEDEMA [None]
  - HEPATITIS [None]
  - IMMUNOGLOBULINS DECREASED [None]
  - LYMPHADENOPATHY [None]
  - MONONUCLEOSIS SYNDROME [None]
  - OEDEMA [None]
  - PROTEIN TOTAL DECREASED [None]
  - PURPURA [None]
  - RASH [None]
  - RASH MORBILLIFORM [None]
  - RED BLOOD CELL COUNT INCREASED [None]
  - SKIN LESION [None]
  - TOXIC SKIN ERUPTION [None]
  - TOXOPLASMOSIS [None]
